FAERS Safety Report 25363902 (Version 1)
Quarter: 2025Q2

REPORT INFORMATION
  Report Type: Spontaneous
  Country: CN (occurrence: CN)
  Receive Date: 20250527
  Receipt Date: 20250527
  Transmission Date: 20250717
  Serious: Yes (Other)
  Sender: FRESENIUS KABI
  Company Number: CN-FreseniusKabi-FK202507372

PATIENT
  Age: 68 Year
  Sex: Male
  Weight: 45 kg

DRUGS (1)
  1. KABIVEN [Suspect]
     Active Substance: ALANINE\ARGININE\ASPARTIC ACID\CALCIUM CHLORIDE\DEXTROSE MONOHYDRATE\GLUTAMIC ACID\GLYCINE\HISTIDINE
     Indication: Oesophageal carcinoma stage 0
     Dosage: FOA: INJECTION?THERAPY START TIME: 10:26
     Route: 041
     Dates: start: 20250519, end: 20250519

REACTIONS (2)
  - Hyperglycaemia [Recovering/Resolving]
  - Vertigo [Recovering/Resolving]

NARRATIVE: CASE EVENT DATE: 20250519
